FAERS Safety Report 9689238 (Version 1)
Quarter: 2013Q4

REPORT INFORMATION
  Report Type: Spontaneous
  Country: CO (occurrence: CO)
  Receive Date: 20131114
  Receipt Date: 20131114
  Transmission Date: 20140711
  Serious: Yes (Death)
  Sender: FDA-Public Use
  Company Number: CO-IPSEN BIOPHARMACEUTICALS, INC.-2013-4907

PATIENT
  Age: 62 Year
  Sex: Male

DRUGS (1)
  1. SOMATULINE [Suspect]
     Indication: NEUROENDOCRINE TUMOUR
     Dosage: 120MG EVERY MONTH
     Route: 058
     Dates: start: 201105, end: 20131008

REACTIONS (1)
  - Neuroendocrine carcinoma metastatic [Fatal]
